FAERS Safety Report 20228408 (Version 9)
Quarter: 2022Q3

REPORT INFORMATION
  Report Type: Spontaneous
  Country: JP (occurrence: JP)
  Receive Date: 20211224
  Receipt Date: 20220908
  Transmission Date: 20221026
  Serious: Yes (Other)
  Sender: FDA-Public Use
  Company Number: JP-BRISTOL-MYERS SQUIBB COMPANY-BMS-2021-140467

PATIENT
  Age: 54 Year
  Sex: Female

DRUGS (13)
  1. YERVOY [Suspect]
     Active Substance: IPILIMUMAB
     Indication: Non-small cell lung cancer recurrent
     Dosage: 67 MG
     Route: 041
     Dates: start: 20211013, end: 20220209
  2. YERVOY [Suspect]
     Active Substance: IPILIMUMAB
     Route: 041
     Dates: start: 20211228, end: 20211228
  3. YERVOY [Suspect]
     Active Substance: IPILIMUMAB
     Route: 041
     Dates: start: 20220209, end: 20220209
  4. YERVOY [Suspect]
     Active Substance: IPILIMUMAB
  5. OPDIVO [Suspect]
     Active Substance: NIVOLUMAB
     Indication: Non-small cell lung cancer recurrent
     Route: 041
     Dates: start: 20211013, end: 20220209
  6. OPDIVO [Suspect]
     Active Substance: NIVOLUMAB
     Route: 041
     Dates: start: 20211208, end: 20211208
  7. OPDIVO [Suspect]
     Active Substance: NIVOLUMAB
     Route: 041
     Dates: start: 20211228, end: 20211228
  8. OPDIVO [Suspect]
     Active Substance: NIVOLUMAB
     Route: 041
     Dates: start: 20220119, end: 20220119
  9. OPDIVO [Suspect]
     Active Substance: NIVOLUMAB
     Route: 041
     Dates: start: 20220209, end: 20220209
  10. ABRAXANE [Concomitant]
     Active Substance: PACLITAXEL
     Indication: Non-small cell lung cancer recurrent
     Route: 041
     Dates: start: 20220216, end: 20220222
  11. OXYCODONE HYDROCHLORIDE [Concomitant]
     Active Substance: OXYCODONE HYDROCHLORIDE
     Indication: Non-small cell lung cancer recurrent
     Dosage: 20 MG
     Route: 065
     Dates: start: 20220216
  12. OXYCODONE HYDROCHLORIDE [Concomitant]
     Active Substance: OXYCODONE HYDROCHLORIDE
     Dosage: UNK
     Route: 065
  13. OXYCODONE HYDROCHLORIDE [Concomitant]
     Active Substance: OXYCODONE HYDROCHLORIDE
     Route: 065

REACTIONS (6)
  - Malignant pleural effusion [Not Recovered/Not Resolved]
  - Cachexia [Not Recovered/Not Resolved]
  - Malignant neoplasm progression [Unknown]
  - Immune-mediated enterocolitis [Recovering/Resolving]
  - Bronchostenosis [Unknown]
  - Atelectasis [Unknown]

NARRATIVE: CASE EVENT DATE: 20211019
